FAERS Safety Report 23129776 (Version 1)
Quarter: 2023Q4

REPORT INFORMATION
  Report Type: Report from Study
  Country: US (occurrence: US)
  Receive Date: 20231031
  Receipt Date: 20231031
  Transmission Date: 20240110
  Serious: Yes (Death, Other)
  Sender: FDA-Public Use
  Company Number: US-PFIZER INC-PV202300177616

PATIENT
  Age: 81 Year

DRUGS (5)
  1. OXALIPLATIN [Suspect]
     Active Substance: OXALIPLATIN
     Indication: Metastatic gastric cancer
     Dosage: 130 MG/M2, CYCLIC
     Route: 042
  2. EPIRUBICIN HYDROCHLORIDE [Suspect]
     Active Substance: EPIRUBICIN HYDROCHLORIDE
     Indication: Metastatic gastric cancer
     Dosage: 50 MG/M2
  3. CAPECITABINE [Suspect]
     Active Substance: CAPECITABINE
     Indication: Metastatic gastric cancer
     Dosage: 625 MG/M2, 2X/DAY FOR 21 DAYS
     Route: 048
  4. PEMBROLIZUMAB [Suspect]
     Active Substance: PEMBROLIZUMAB
     Indication: Metastatic gastric cancer
     Dosage: 200 MG, CYCLIC
     Route: 042
  5. PEMBROLIZUMAB [Suspect]
     Active Substance: PEMBROLIZUMAB
     Dosage: 14 DOSES (POSTOPERATIVE CHEMOIMMUNOTHERAPY)
     Route: 042

REACTIONS (1)
  - Gastric perforation [Fatal]
